FAERS Safety Report 7405267-3 (Version None)
Quarter: 2011Q1

REPORT INFORMATION
  Report Type: 
  Country: None (occurrence: None)
  Receive Date: 20110330
  Receipt Date: 20110318
  Transmission Date: 20110831
  Serious: Yes (Other)
  Sender: FDA-Public Use
  Company Number: 2011AP000241

PATIENT
  Sex: Female

DRUGS (1)
  1. KETOTIFEN FUMARATE [Suspect]
     Indication: PRODUCT USED FOR UNKNOWN INDICATION
     Dosage: 1 GTT;TIW;OPH
     Route: 047

REACTIONS (1)
  - EYE HAEMORRHAGE [None]
